FAERS Safety Report 6919660-6 (Version None)
Quarter: 2010Q3

REPORT INFORMATION
  Report Type: 
  Country: None (occurrence: None)
  Receive Date: 20100811
  Receipt Date: 20100805
  Transmission Date: 20110219
  Serious: Yes (Life-Threatening)
  Sender: FDA-Public Use
  Company Number: DE-TEVA-243912ISR

PATIENT
  Age: 65 Year
  Sex: Female

DRUGS (9)
  1. AZILECT [Suspect]
     Indication: PARKINSON'S DISEASE
  2. SINEMET [Suspect]
     Indication: PARKINSON'S DISEASE
  3. PRAMIPEXOLE DIHYDROCHLORIDE [Suspect]
     Indication: PARKINSON'S DISEASE
  4. TRIHEXYPHENIDYL HCL [Suspect]
     Indication: PARKINSON'S DISEASE
  5. TENECTEPLASE [Suspect]
     Indication: MYOCARDIAL INFARCTION
  6. LISINOPRIL [Concomitant]
  7. METOPROLOL [Concomitant]
  8. ENOXAPARIN SODIUM [Concomitant]
  9. ACETYLSALICYLIC ACID SRT [Concomitant]

REACTIONS (1)
  - CORONARY ARTERY DISSECTION [None]
